FAERS Safety Report 12568853 (Version 5)
Quarter: 2017Q1

REPORT INFORMATION
  Report Type: Report from Study
  Country: AT (occurrence: AT)
  Receive Date: 20160719
  Receipt Date: 20170126
  Transmission Date: 20170428
  Serious: Yes (Other)
  Sender: FDA-Public Use
  Company Number: AT-VELOXIS PHARMACEUTICALS-1055226

PATIENT
  Age: 60 Year
  Sex: Male
  Weight: 76.18 kg

DRUGS (14)
  1. HUMALOG [Concomitant]
     Active Substance: INSULIN LISPRO
     Dates: start: 20160204
  2. ENVARSUS XR [Suspect]
     Active Substance: TACROLIMUS
     Indication: IMMUNOSUPPRESSANT DRUG THERAPY
     Route: 048
     Dates: start: 20160209, end: 20160420
  3. CONCOR [Concomitant]
     Active Substance: BISOPROLOL FUMARATE
     Dates: start: 20150113
  4. EUSAPRIM [Concomitant]
     Active Substance: SULFAMETHOXAZOLE\TRIMETHOPRIM
     Dates: start: 20160204
  5. APREDNISLON [Concomitant]
     Active Substance: PREDNISOLONE
     Dates: start: 20160121
  6. AEROMUC [Concomitant]
     Dates: start: 20160121
  7. AMLODIPIN [Concomitant]
     Active Substance: AMLODIPINE BESYLATE
     Dates: start: 20160204
  8. MYFENAX [Concomitant]
     Active Substance: MYCOPHENOLATE MOFETIL
     Dates: start: 20160121
  9. LOVENOX [Concomitant]
     Active Substance: ENOXAPARIN SODIUM
     Dates: start: 20160204
  10. PANTOLOC [Concomitant]
     Active Substance: PANTOPRAZOLE SODIUM
     Dates: start: 20150113
  11. HUMALOG [Concomitant]
     Active Substance: INSULIN LISPRO
     Dates: start: 20160204
  12. SANDIMMUNE [Concomitant]
     Active Substance: CYCLOSPORINE
     Dates: start: 20160121
  13. CIPRALEX [Concomitant]
     Active Substance: ESCITALOPRAM OXALATE
     Dates: start: 20151114
  14. THROMBO ASS [Concomitant]
     Active Substance: ASPIRIN
     Dates: start: 20150113

REACTIONS (3)
  - Circulatory collapse [Recovered/Resolved]
  - Tremor [Unknown]
  - Neuropathy peripheral [Unknown]

NARRATIVE: CASE EVENT DATE: 20160414
